FAERS Safety Report 8774710 (Version 1)
Quarter: 2012Q4

REPORT INFORMATION
  Report Type: 
  Country: US (occurrence: US)
  Receive Date: 20120910
  Receipt Date: 20120910
  Transmission Date: 20130627
  Serious: Yes (Other)
  Sender: FDA-Public Use
  Company Number: US-PFIZER INC-2012221580

PATIENT
  Sex: Male

DRUGS (2)
  1. CHANTIX [Suspect]
     Indication: SMOKING CESSATION THERAPY
     Dosage: 0.5 mg, daily
     Dates: start: 201208, end: 2012
  2. CHANTIX [Suspect]
     Dosage: UNK
     Dates: start: 2012

REACTIONS (2)
  - Chest pain [Unknown]
  - Headache [Unknown]
